FAERS Safety Report 9877965 (Version 1)
Quarter: 2014Q1

REPORT INFORMATION
  Report Type: Report from Study
  Country: IT (occurrence: IT)
  Receive Date: 20140206
  Receipt Date: 20140206
  Transmission Date: 20141002
  Serious: Yes (Death, Hospitalization)
  Sender: FDA-Public Use
  Company Number: IT-INCYTE CORPORATION-2014IN000237

PATIENT
  Age: 70 Year
  Sex: 0

DRUGS (2)
  1. INC424 [Suspect]
     Indication: MYELOFIBROSIS
     Dosage: UNK
     Route: 048
     Dates: start: 20120328
  2. INC424 [Suspect]
     Dosage: 10 MG, BID
     Route: 048
     Dates: start: 20130830, end: 20140125

REACTIONS (2)
  - Endocarditis [Fatal]
  - Embolic stroke [Fatal]
